FAERS Safety Report 12982772 (Version 1)
Quarter: 2016Q4

REPORT INFORMATION
  Report Type: Spontaneous
  Country: BR (occurrence: BR)
  Receive Date: 20161129
  Receipt Date: 20161129
  Transmission Date: 20170207
  Serious: Yes (Hospitalization, Other)
  Sender: FDA-Public Use
  Company Number: BR-PFIZER INC-2016547071

PATIENT
  Age: 76 Year
  Sex: Female

DRUGS (1)
  1. SUTENT [Suspect]
     Active Substance: SUNITINIB MALATE
     Dosage: 50 MG, UNK
     Dates: start: 20160822

REACTIONS (9)
  - Memory impairment [Unknown]
  - Protein total decreased [Unknown]
  - Asthenia [Unknown]
  - Toxicity to various agents [Unknown]
  - Eating disorder [Unknown]
  - Swelling [Unknown]
  - Movement disorder [Unknown]
  - Mineral deficiency [Unknown]
  - Pneumonia [Recovered/Resolved]
